FAERS Safety Report 8853026 (Version 2)
Quarter: 2012Q4

REPORT INFORMATION
  Report Type: 
  Country: US (occurrence: US)
  Receive Date: 20121022
  Receipt Date: 20121115
  Transmission Date: 20130627
  Serious: Yes (Other)
  Sender: FDA-Public Use
  Company Number: US-ROCHE-GNE208255

PATIENT
  Age: 12 Year
  Sex: Female
  Weight: 29.93 kg

DRUGS (13)
  1. NUTROPIN AQ [Suspect]
     Indication: HYPOPITUITARISM
     Dosage: 1.2 mg, 6/Week
     Route: 058
     Dates: start: 20030904
  2. NUTROPIN AQ [Suspect]
     Route: 065
     Dates: start: 20040331, end: 200408
  3. DDAVP [Concomitant]
     Dosage: .6 mg, QAM
     Route: 048
     Dates: start: 19961010
  4. DDAVP [Concomitant]
     Dosage: 1 mg, QPM
     Route: 065
     Dates: start: 19961010
  5. CORTEF [Concomitant]
     Dosage: 5 mg, tid
     Route: 048
     Dates: start: 19961010
  6. SYNTHROID [Concomitant]
     Dosage: 62.5 ?g, qd
     Route: 048
  7. ZONEGRAN [Concomitant]
     Dosage: 50 mg, QAM
     Route: 048
  8. ZONEGRAN [Concomitant]
     Dosage: 100 mg, QPM
     Route: 065
  9. CELEXA [Concomitant]
  10. LEVOTHYROXINE [Concomitant]
     Route: 065
     Dates: start: 19961010
  11. PROTROPIN [Concomitant]
     Route: 065
     Dates: start: 19970905
  12. HUMATROPE [Concomitant]
     Route: 065
     Dates: start: 19990915, end: 20000601
  13. NORDITROPIN [Concomitant]
     Route: 065
     Dates: start: 20050902

REACTIONS (2)
  - Convulsion [Recovered/Resolved]
  - Neoplasm [Unknown]
